FAERS Safety Report 15189966 (Version 3)
Quarter: 2018Q4

REPORT INFORMATION
  Report Type: Spontaneous
  Country: DE (occurrence: DE)
  Receive Date: 20180724
  Receipt Date: 20180814
  Transmission Date: 20190204
  Serious: Yes (Hospitalization, Other)
  Sender: FDA-Public Use
  Company Number: DE-AUROBINDO-AUR-APL-2018-036384

PATIENT
  Age: 55 Year
  Sex: Male

DRUGS (4)
  1. VALSARTAN AUROBINDO, FILM-COATED TABLETS 160MG [Suspect]
     Active Substance: VALSARTAN
     Dosage: HALVE TABLET IN MORNING AND HALVE TABLET IN EVENING
     Route: 048
     Dates: start: 201806, end: 20180702
  2. VALSARTAN AUROBINDO, FILM-COATED TABLETS 160MG [Suspect]
     Active Substance: VALSARTAN
     Indication: HYPERTENSION
     Dosage: HALVE TABLET IN THE MORNING
     Route: 048
     Dates: start: 201801, end: 201803
  3. PANTOPRAZOL                        /01263201/ [Concomitant]
     Active Substance: PANTOPRAZOLE
     Indication: PRODUCT USED FOR UNKNOWN INDICATION
     Dosage: TWICW A WEEK
     Route: 048
  4. MAGNESIUM [Concomitant]
     Active Substance: MAGNESIUM
     Indication: PRODUCT USED FOR UNKNOWN INDICATION
     Dosage: OCCASIONAL USE
     Route: 048

REACTIONS (3)
  - Product substitution issue [Unknown]
  - Arrhythmia [Recovered/Resolved]
  - Drug ineffective [Recovered/Resolved]

NARRATIVE: CASE EVENT DATE: 201802
